FAERS Safety Report 7185366-4 (Version None)
Quarter: 2010Q4

REPORT INFORMATION
  Report Type: 
  Country: None (occurrence: None)
  Receive Date: 20101222
  Receipt Date: 20101216
  Transmission Date: 20110411
  Serious: Yes (Hospitalization)
  Sender: FDA-Public Use
  Company Number: IE-PFIZER INC-2010139325

PATIENT
  Age: 58 Year
  Sex: Female

DRUGS (2)
  1. TOVIAZ [Suspect]
     Indication: HYPERTONIC BLADDER
  2. LYRICA [Concomitant]

REACTIONS (2)
  - IGA NEPHROPATHY [None]
  - OEDEMA PERIPHERAL [None]
